FAERS Safety Report 14638015 (Version 1)
Quarter: 2018Q1

REPORT INFORMATION
  Report Type: Spontaneous
  Country: US (occurrence: US)
  Receive Date: 20180314
  Receipt Date: 20180314
  Transmission Date: 20180509
  Serious: No
  Sender: FDA-Public Use
  Company Number: US-VYERA PHARMACEUTICALS, LLC-2017TNG00033

PATIENT
  Sex: Male

DRUGS (1)
  1. DARAPRIM [Suspect]
     Active Substance: PYRIMETHAMINE
     Indication: AMYOTROPHIC LATERAL SCLEROSIS
     Dosage: 25 MG, 2X/DAY
     Route: 048
     Dates: start: 20150427

REACTIONS (2)
  - Nausea [Unknown]
  - Off label use [Unknown]
